FAERS Safety Report 8462520-2 (Version None)
Quarter: 2012Q2

REPORT INFORMATION
  Report Type: 
  Country: None (occurrence: None)
  Receive Date: 20120625
  Receipt Date: 20120621
  Transmission Date: 20120825
  Serious: Yes (Hospitalization)
  Sender: FDA-Public Use
  Company Number: DK-BAYER-2012-061472

PATIENT
  Sex: Female

DRUGS (1)
  1. YASMIN [Suspect]
     Indication: CONTRACEPTION
     Dosage: UNK
     Route: 048
     Dates: start: 20110908

REACTIONS (7)
  - THROMBOSIS [None]
  - GROIN PAIN [None]
  - OEDEMA PERIPHERAL [None]
  - STENT PLACEMENT [None]
  - VENOUS STENOSIS [None]
  - ABDOMINAL PAIN [None]
  - PYREXIA [None]
